FAERS Safety Report 8775687 (Version 1)
Quarter: 2012Q4

REPORT INFORMATION
  Report Type: 
  Country: US (occurrence: US)
  Receive Date: 20120910
  Receipt Date: 20120910
  Transmission Date: 20130627
  Serious: Yes (Other)
  Sender: FDA-Public Use
  Company Number: US-PFIZER INC-2012221292

PATIENT
  Age: 78 Year
  Sex: Female
  Weight: 51.25 kg

DRUGS (5)
  1. EFFEXOR [Suspect]
     Indication: DEPRESSION
     Dosage: 112.5 mg (75 mg tablet + 37.5 mg tablet),daily
     Route: 048
     Dates: start: 1997
  2. ADVAIR DISKUS [Concomitant]
     Indication: CHRONIC OBSTRUCTIVE PULMONARY DISEASE
     Dosage: strength 100/50 mcg, 2x/day
     Route: 055
     Dates: start: 1997
  3. ALBUTEROL [Concomitant]
     Indication: CHRONIC OBSTRUCTIVE PULMONARY DISEASE
     Dosage: UNK, as needed
     Route: 055
     Dates: start: 1997
  4. ALBUTEROL [Concomitant]
     Indication: EMOTIONAL DISORDER
  5. ALBUTEROL [Concomitant]
     Indication: NERVOUSNESS

REACTIONS (1)
  - Ligament rupture [Not Recovered/Not Resolved]
